FAERS Safety Report 21447377 (Version 2)
Quarter: 2023Q1

REPORT INFORMATION
  Report Type: Spontaneous
  Country: US (occurrence: US)
  Receive Date: 20221012
  Receipt Date: 20230307
  Transmission Date: 20230418
  Serious: Yes (Other)
  Sender: FDA-Public Use
  Company Number: US-PFIZER INC-202201213768

PATIENT
  Age: 78 Year
  Sex: Female
  Weight: 61.6 kg

DRUGS (1)
  1. XELJANZ [Suspect]
     Active Substance: TOFACITINIB CITRATE
     Dosage: 5 MG

REACTIONS (3)
  - Ischaemic stroke [Unknown]
  - Cerebral infarction [Unknown]
  - Cerebral artery embolism [Unknown]

NARRATIVE: CASE EVENT DATE: 20210917
